FAERS Safety Report 10638707 (Version 1)
Quarter: 2014Q4

REPORT INFORMATION
  Report Type: Spontaneous
  Country: US (occurrence: US)
  Receive Date: 20141208
  Receipt Date: 20141208
  Transmission Date: 20150529
  Serious: Yes (Hospitalization, Other)
  Sender: FDA-Public Use
  Company Number: US-ABBVIE-14P-163-1316163-00

PATIENT
  Age: 60 Year
  Sex: Male

DRUGS (1)
  1. ANDROGEL [Suspect]
     Active Substance: TESTOSTERONE
     Indication: BLOOD TESTOSTERONE DECREASED
     Dosage: FREQUENCY UNKNOWN
     Route: 062

REACTIONS (6)
  - Anhedonia [Unknown]
  - Social problem [Unknown]
  - Acute myocardial infarction [Not Recovered/Not Resolved]
  - Fear [Unknown]
  - Physical disability [Unknown]
  - Economic problem [Unknown]

NARRATIVE: CASE EVENT DATE: 20121204
